FAERS Safety Report 10194131 (Version 1)
Quarter: 2014Q2

REPORT INFORMATION
  Report Type: Spontaneous
  Country: US (occurrence: US)
  Receive Date: 20140524
  Receipt Date: 20140524
  Transmission Date: 20141212
  Serious: No
  Sender: FDA-Public Use
  Company Number: US-SANOFI-AVENTIS-2013SA056986

PATIENT
  Age: 52 Year
  Sex: Male
  Weight: 113 kg

DRUGS (5)
  1. LANTUS [Suspect]
     Dosage: START DATE: 1 YEAR AGO. 50 UNIT MORNING AND 50 UNITS EVENING. DOSE:100 UNIT(S)
     Route: 051
  2. HUMALOG [Concomitant]
  3. METHADONE [Concomitant]
     Indication: PAIN
  4. XANAX [Concomitant]
     Indication: ANXIETY
  5. SYNTHROID [Concomitant]
     Indication: THYROID DISORDER

REACTIONS (2)
  - Limb discomfort [Unknown]
  - Pain [Unknown]
